FAERS Safety Report 25429103 (Version 1)
Quarter: 2025Q2

REPORT INFORMATION
  Report Type: Spontaneous
  Country: US (occurrence: US)
  Receive Date: 20250612
  Receipt Date: 20250612
  Transmission Date: 20250716
  Serious: No
  Sender: SANOFI AVENTIS
  Company Number: US-SA-2025SA165543

PATIENT
  Sex: Female

DRUGS (21)
  1. DUPIXENT [Suspect]
     Active Substance: DUPILUMAB
     Indication: Rhinitis allergic
     Dosage: 300 MG, QOW
     Route: 058
  2. ADVAIR HFA [Concomitant]
     Active Substance: FLUTICASONE PROPIONATE\SALMETEROL XINAFOATE
  3. ALBUTEROL SULFATE [Concomitant]
     Active Substance: ALBUTEROL SULFATE
  4. ASPIRIN [Concomitant]
     Active Substance: ASPIRIN
  5. CLONAZEPAM [Concomitant]
     Active Substance: CLONAZEPAM
  6. COENZYME Q10 [Concomitant]
     Active Substance: DIETARY SUPPLEMENT\UBIDECARENONE
  7. FLUOXETINE HYDROCHLORIDE [Concomitant]
     Active Substance: FLUOXETINE HYDROCHLORIDE
  8. GEMTESA [Concomitant]
     Active Substance: VIBEGRON
  9. IPRATROPIUM [Concomitant]
     Active Substance: IPRATROPIUM
  10. IRON [Concomitant]
     Active Substance: IRON
  11. METOPROLOL SUCCINATE [Concomitant]
     Active Substance: METOPROLOL SUCCINATE
  12. VITAMINS NOS [Concomitant]
     Active Substance: VITAMINS
  13. PANTOPRAZOLE [Concomitant]
     Active Substance: PANTOPRAZOLE
  14. PLAVIX [Concomitant]
     Active Substance: CLOPIDOGREL BISULFATE
  15. PRAMIPEXOLE [Concomitant]
     Active Substance: PRAMIPEXOLE
  16. RAMIPRIL [Concomitant]
     Active Substance: RAMIPRIL
  17. RANOLAZINE [Concomitant]
     Active Substance: RANOLAZINE
  18. ROSUVASTATIN [Concomitant]
     Active Substance: ROSUVASTATIN
  19. SINGULAIR [Concomitant]
     Active Substance: MONTELUKAST SODIUM
  20. TRAZODONE HCL [Concomitant]
     Active Substance: TRAZODONE HYDROCHLORIDE
  21. VITAMIN D NOS [Concomitant]
     Active Substance: CHOLECALCIFEROL\ERGOCALCIFEROL

REACTIONS (2)
  - Loss of personal independence in daily activities [Not Recovered/Not Resolved]
  - Product use in unapproved indication [Unknown]
